FAERS Safety Report 22638205 (Version 1)
Quarter: 2023Q2

REPORT INFORMATION
  Report Type: Spontaneous
  Country: US (occurrence: None)
  Receive Date: 20230623
  Receipt Date: 20230623
  Transmission Date: 20230721
  Serious: Yes (Other)
  Sender: FDA-Public Use
  Company Number: None

PATIENT
  Age: 53 Year
  Sex: Female
  Weight: 79.65 kg

DRUGS (8)
  1. GABAPENTIN [Suspect]
     Active Substance: GABAPENTIN
     Indication: Neuropathy peripheral
     Dosage: OTHER QUANTITY : 2 CAPSULE(S);?FREQUENCY : AT BEDTIME;?
     Route: 048
  2. TOPAMAX [Suspect]
     Active Substance: TOPIRAMATE
     Indication: Depression
     Dosage: OTHER QUANTITY : 1 TABLET(S);?FREQUENCY : DAILY;?
     Route: 048
     Dates: end: 20230420
  3. GABAPENTIN [Concomitant]
     Active Substance: GABAPENTIN
  4. NeuropAway AM Thorn Meta Balance [Concomitant]
  5. NeuropAway AM Thorn Meta Balance [Concomitant]
  6. GABAPENTIN [Concomitant]
     Active Substance: GABAPENTIN
  7. neuropaway am [Concomitant]
  8. thorn meta balance [Concomitant]

REACTIONS (2)
  - Loss of libido [None]
  - Female orgasmic disorder [None]

NARRATIVE: CASE EVENT DATE: 20230102
